FAERS Safety Report 4340510-9 (Version None)
Quarter: 2004Q2

REPORT INFORMATION
  Report Type: 
  Country: None (occurrence: None)
  Receive Date: 20040414
  Receipt Date: 20040331
  Transmission Date: 20050107
  Serious: Yes (Hospitalization)
  Sender: FDA-Public Use
  Company Number: UK035431

PATIENT
  Sex: Female
  Weight: 60 kg

DRUGS (17)
  1. KINERET [Suspect]
     Indication: RHEUMATOID ARTHRITIS
     Dosage: 100 MG, DAILY, SC
     Route: 058
     Dates: start: 20030201, end: 20030408
  2. PREDNISONE [Concomitant]
  3. HYDROXYCHLOROQUINE PHOSPHATE [Concomitant]
  4. CELECOXIB [Concomitant]
  5. ROFECOXIB [Concomitant]
  6. PROVIDONE-IODINE [Concomitant]
  7. OROCAL VITAMIN D [Concomitant]
  8. MORPHINE SULFATE [Concomitant]
  9. DIFRAREL [Concomitant]
  10. POTASSIUM CHLORIDE [Concomitant]
  11. ZOLPIDEM TARTRATE [Concomitant]
  12. SMECTA [Concomitant]
  13. BROMAZEPAM [Concomitant]
  14. ATENOLOL AND CHLORTHALIDONE [Concomitant]
  15. PAROXETINE HCL [Concomitant]
  16. ESOMEPRAZOLE [Concomitant]
  17. TRIMEBUTINE [Concomitant]

REACTIONS (2)
  - DRUG EFFECT DECREASED [None]
  - MALIGNANT MELANOMA [None]
